FAERS Safety Report 16347286 (Version 2)
Quarter: 2019Q2

REPORT INFORMATION
  Report Type: Report from Study
  Country: CA (occurrence: CA)
  Receive Date: 20190523
  Receipt Date: 20190528
  Transmission Date: 20190711
  Serious: No
  Sender: FDA-Public Use
  Company Number: CA-ROCHE-2323783

PATIENT
  Age: 58 Year
  Sex: Female

DRUGS (10)
  1. BIOTIN [Concomitant]
     Active Substance: BIOTIN
     Route: 065
  2. OCREVUS [Suspect]
     Active Substance: OCRELIZUMAB
     Indication: PRIMARY PROGRESSIVE MULTIPLE SCLEROSIS
     Dosage: DAY 0 AND 14, THEN 600 MG EVERY 6 MONTH
     Route: 042
     Dates: start: 20190510
  3. BACLOFEN. [Concomitant]
     Active Substance: BACLOFEN
     Route: 065
  4. EFFEXOR [Concomitant]
     Active Substance: VENLAFAXINE HYDROCHLORIDE
     Route: 065
  5. FAMPYRA [Concomitant]
     Active Substance: DALFAMPRIDINE
     Route: 065
  6. IRON [Concomitant]
     Active Substance: IRON
     Dosage: AS REQUIRED
     Route: 065
  7. MIRABEGRON [Concomitant]
     Active Substance: MIRABEGRON
     Route: 065
  8. SYNTHROID [Concomitant]
     Active Substance: LEVOTHYROXINE SODIUM
     Route: 065
  9. LETROZOLE. [Concomitant]
     Active Substance: LETROZOLE
  10. ASPIRIN 81 [Concomitant]
     Active Substance: ASPIRIN
     Route: 065

REACTIONS (3)
  - Eye swelling [Recovering/Resolving]
  - Conjunctivitis [Recovering/Resolving]
  - Hordeolum [Recovered/Resolved]

NARRATIVE: CASE EVENT DATE: 20190514
